FAERS Safety Report 26038187 (Version 1)
Quarter: 2025Q4

REPORT INFORMATION
  Report Type: Spontaneous
  Country: JP (occurrence: JP)
  Receive Date: 20251113
  Receipt Date: 20251113
  Transmission Date: 20260118
  Serious: Yes (Death, Other)
  Sender: COLLEGIUM PHARMACEUTICAL
  Company Number: JP-shionogi-202500011700

PATIENT

DRUGS (14)
  1. SYMPROIC [Suspect]
     Active Substance: NALDEMEDINE TOSYLATE
     Indication: Constipation
     Dosage: 0.2 MILLIGRAM, QD
     Route: 048
  2. METHADONE HYDROCHLORIDE [Suspect]
     Active Substance: METHADONE HYDROCHLORIDE
     Indication: Gastric cancer
     Dosage: 5 MILLIGRAM, BID
     Route: 048
     Dates: start: 20230609, end: 20230615
  3. METHADONE HYDROCHLORIDE [Suspect]
     Active Substance: METHADONE HYDROCHLORIDE
     Indication: Cancer pain
     Dosage: 10 MILLIGRAM, BID
     Route: 048
     Dates: start: 20230616, end: 20230706
  4. METHADONE HYDROCHLORIDE [Suspect]
     Active Substance: METHADONE HYDROCHLORIDE
     Dosage: 15 MILLIGRAM, BID
     Route: 048
     Dates: start: 20230707, end: 20230720
  5. METHADONE HYDROCHLORIDE [Suspect]
     Active Substance: METHADONE HYDROCHLORIDE
     Dosage: 20 MILLIGRAM, BID
     Route: 048
     Dates: start: 20230721, end: 20230817
  6. METHADONE HYDROCHLORIDE [Suspect]
     Active Substance: METHADONE HYDROCHLORIDE
     Dosage: 30 MILLIGRAM, QD
     Route: 048
     Dates: start: 20230817
  7. ACETAMINOPHEN [Concomitant]
     Active Substance: ACETAMINOPHEN
     Indication: Gastric cancer
     Dosage: 500 MILLIGRAM, UNKNOWN
     Route: 048
  8. OXYCODONE [Concomitant]
     Active Substance: OXYCODONE
     Indication: Gastric cancer
     Dosage: 20 MILLIGRAM, UNKNOWN
     Route: 048
  9. CALCIUM POLYSTYRENE SULFONATE [Concomitant]
     Active Substance: CALCIUM POLYSTYRENE SULFONATE
     Indication: Hyperkalaemia
     Dosage: 5 GRAM, UNKNOWN
     Route: 048
  10. DULOXETINE HYDROCHLORIDE [Concomitant]
     Active Substance: DULOXETINE HYDROCHLORIDE
     Indication: Panic disorder
     Dosage: 20 MILLIGRAM, UNKNOWN
     Route: 048
  11. PREGABALIN [Concomitant]
     Active Substance: PREGABALIN
     Indication: Gastric cancer
     Dosage: 1 TABLET IN THE MORNING (75 MG), 2 TABLETS IN THE EVENING (150 MG)
     Route: 048
  12. MAGNESIUM OXIDE [Concomitant]
     Active Substance: MAGNESIUM OXIDE
     Indication: Constipation
     Dosage: 500 MILLIGRAM, UNKNOWN
     Route: 048
  13. DENOSUMAB [Concomitant]
     Active Substance: DENOSUMAB
     Indication: Product used for unknown indication
     Dosage: UNK, UNKNOWN
     Route: 065
     Dates: start: 20230707
  14. CALCIUM CARBONATE\CHOLECALCIFEROL\MAGNESIUM CARBONATE [Concomitant]
     Active Substance: CALCIUM CARBONATE\CHOLECALCIFEROL\MAGNESIUM CARBONATE
     Indication: Product used for unknown indication
     Dosage: UNK, UNKNOWN
     Route: 065
     Dates: start: 20230818

REACTIONS (2)
  - Gastric cancer [Fatal]
  - Electrocardiogram QT prolonged [Recovering/Resolving]

NARRATIVE: CASE EVENT DATE: 20230817
